FAERS Safety Report 21615162 (Version 1)
Quarter: 2022Q4

REPORT INFORMATION
  Report Type: Spontaneous
  Country: CA (occurrence: CA)
  Receive Date: 20221118
  Receipt Date: 20221118
  Transmission Date: 20230113
  Serious: Yes (Other)
  Sender: FDA-Public Use
  Company Number: CA-PFIZER INC-PV202200104214

PATIENT
  Sex: Female

DRUGS (2)
  1. ALESSE 28 [Suspect]
     Active Substance: ETHINYL ESTRADIOL\LEVONORGESTREL
     Indication: Contraception
     Dosage: LOW-DOSE
     Route: 048
  2. ESTRADIOL [Suspect]
     Active Substance: ESTRADIOL
     Route: 067

REACTIONS (1)
  - Pulmonary embolism [Unknown]
